FAERS Safety Report 16131047 (Version 4)
Quarter: 2020Q1

REPORT INFORMATION
  Report Type: Spontaneous
  Country: US (occurrence: US)
  Receive Date: 20190328
  Receipt Date: 20200302
  Transmission Date: 20200409
  Serious: No
  Sender: FDA-Public Use
  Company Number: US-BIOMARINAP-US-2019-122672

PATIENT
  Age: 11 Year
  Sex: Male

DRUGS (5)
  1. ALDURAZYME [Suspect]
     Active Substance: LARONIDASE
     Dosage: UNK
     Route: 041
     Dates: start: 20120508
  2. ALDURAZYME [Suspect]
     Active Substance: LARONIDASE
     Dosage: 31.9 MILLIGRAM
     Route: 041
  3. ALDURAZYME [Suspect]
     Active Substance: LARONIDASE
     Dosage: 40.6 MILLIGRAM, QW
     Route: 042
     Dates: start: 20120508
  4. ALDURAZYME [Suspect]
     Active Substance: LARONIDASE
     Indication: MUCOPOLYSACCHARIDOSIS I
     Dosage: 31.9 MILLIGRAM, QW
     Route: 041
  5. ALDURAZYME [Suspect]
     Active Substance: LARONIDASE
     Dosage: 31.9 MILLIGRAM
     Route: 041
     Dates: start: 20180111

REACTIONS (5)
  - Intentional product misuse [Unknown]
  - Eye pain [Recovered/Resolved]
  - Vomiting [Recovered/Resolved]
  - Migraine [Recovered/Resolved]
  - Device issue [Unknown]

NARRATIVE: CASE EVENT DATE: 20190404
